FAERS Safety Report 12899874 (Version 1)
Quarter: 2016Q4

REPORT INFORMATION
  Report Type: Spontaneous
  Country: SI (occurrence: SI)
  Receive Date: 20161101
  Receipt Date: 20161101
  Transmission Date: 20170207
  Serious: Yes (Other)
  Sender: FDA-Public Use
  Company Number: SI-PFIZER INC-2016502222

PATIENT
  Age: 87 Year
  Sex: Female
  Weight: 71 kg

DRUGS (13)
  1. TORASEMID [Concomitant]
     Active Substance: TORSEMIDE
     Dosage: 2.5 MG, IN THE MORNING
  2. RANOLAZINE [Concomitant]
     Active Substance: RANOLAZINE
     Dosage: 500 MG, 2X/DAY
  3. BISOPROLOL [Concomitant]
     Active Substance: BISOPROLOL
     Dosage: 5 MG, 1X/DAY IN THE MORNING
  4. TRAMADOL/PARACETAMOL [Concomitant]
     Active Substance: ACETAMINOPHEN\TRAMADOL
     Dosage: TRAMADOL  37.5 MG/PARACETAMOL 325 MG
  5. TRIMETAZIDINE [Concomitant]
     Active Substance: TRIMETAZIDINE
     Dosage: 35 MG, 2X/DAY
  6. INSULIN LISPRO [Concomitant]
     Active Substance: INSULIN LISPRO
     Dosage: 12 IU IN THE MORNING, 8 IU ON NOON, 7 IU IN THE EVENING, 3X/DAY
  7. RISPERIDON [Concomitant]
     Active Substance: RISPERIDONE
     Dosage: 0.5 MG, 1X/DAY IN THE EVENING
  8. GLYCERYL TNT [Concomitant]
     Dosage: 0.4 MG/H DURING DAY
  9. CALCITRIOL. [Concomitant]
     Active Substance: CALCITRIOL
     Dosage: 0.25 UG, 1X/DAY IN THE MORNING
  10. WARFARIN [Concomitant]
     Active Substance: WARFARIN
     Indication: ATRIAL FIBRILLATION
     Dosage: 3 MG, ON DEDICATED SCHEMA
  11. ALPRAZOLAM. [Suspect]
     Active Substance: ALPRAZOLAM
     Dosage: 0.5 MG, UNK
  12. OMEPRAZOL [Concomitant]
     Active Substance: OMEPRAZOLE
     Dosage: 20 MG, 1X/DAY MORNING
  13. VALSARTAN + HIDROCLOROTIAZIDA [Concomitant]
     Active Substance: HYDROCHLOROTHIAZIDE\VALSARTAN
     Dosage: VALSARTAN 160MG/HYDROCHLOROTHIAZIDE 12.5 MG, 1XDAY

REACTIONS (5)
  - Hallucination, auditory [Recovered/Resolved]
  - Dizziness [Recovered/Resolved]
  - Glomerular filtration rate decreased [Unknown]
  - Tremor [Recovered/Resolved]
  - Memory impairment [Unknown]
